FAERS Safety Report 8136122 (Version 4)
Quarter: 2013Q1

REPORT INFORMATION
  Report Type: Spontaneous
  Country: US (occurrence: US)
  Receive Date: 20110914
  Receipt Date: 20130227
  Transmission Date: 20140127
  Serious: Yes (Hospitalization)
  Sender: FDA-Public Use
  Company Number: US-GLAXOSMITHKLINE-A0898474A

PATIENT
  Age: 56 Year
  Sex: Female
  Weight: 83.6 kg

DRUGS (6)
  1. AVANDIA [Suspect]
     Indication: TYPE 2 DIABETES MELLITUS
     Dosage: 4MG PER DAY
     Route: 048
     Dates: start: 199910, end: 20071125
  2. AVANDAMET [Suspect]
     Indication: DIABETES MELLITUS
     Route: 048
     Dates: start: 200808
  3. NORVASC [Concomitant]
  4. ISOSORBIDE MONONITRATE [Concomitant]
  5. EFFEXOR [Concomitant]
  6. ASPIRIN [Concomitant]

REACTIONS (2)
  - Coronary artery disease [Not Recovered/Not Resolved]
  - Pain [Unknown]
